FAERS Safety Report 19701295 (Version 9)
Quarter: 2022Q1

REPORT INFORMATION
  Report Type: Spontaneous
  Country: GB (occurrence: GB)
  Receive Date: 20210814
  Receipt Date: 20220308
  Transmission Date: 20220423
  Serious: Yes (Hospitalization, Other)
  Sender: FDA-Public Use
  Company Number: GB-TEVA-2021-GB-1941401

PATIENT
  Age: 52 Year
  Sex: Female
  Weight: 101 kg

DRUGS (33)
  1. DOXORUBICIN [Suspect]
     Active Substance: DOXORUBICIN
     Indication: Diffuse large B-cell lymphoma stage IV
     Route: 042
     Dates: start: 20210721, end: 20210721
  2. DOXORUBICIN [Suspect]
     Active Substance: DOXORUBICIN
     Route: 042
     Dates: start: 20210811, end: 20210811
  3. VINCRISTINE [Suspect]
     Active Substance: VINCRISTINE
     Indication: Diffuse large B-cell lymphoma stage IV
     Dosage: SINGLE
     Route: 042
     Dates: start: 20210721, end: 20210721
  4. VINCRISTINE [Suspect]
     Active Substance: VINCRISTINE
     Dosage: SINGLE
     Route: 042
     Dates: start: 20210811, end: 20210811
  5. EPCORITAMAB [Suspect]
     Active Substance: EPCORITAMAB
     Indication: Diffuse large B-cell lymphoma stage IV
     Dosage: PRIMING DOSE:0.16 MG, SINGLE
     Route: 058
     Dates: start: 20210722, end: 20210811
  6. EPCORITAMAB [Suspect]
     Active Substance: EPCORITAMAB
     Dosage: 2 DOSES OF?EPCORITAMAB WITH THE LATEST DOSE
     Route: 058
     Dates: start: 20210811
  7. EPCORITAMAB [Suspect]
     Active Substance: EPCORITAMAB
     Dosage: RE-PRIMED WITH EPCORITAMAB
     Dates: start: 20210902
  8. RITUXIMAB [Suspect]
     Active Substance: RITUXIMAB
     Indication: Diffuse large B-cell lymphoma stage IV
     Dosage: SINGLE
     Route: 042
     Dates: start: 20210721, end: 20210722
  9. RITUXIMAB [Suspect]
     Active Substance: RITUXIMAB
     Dosage: SINGLE
     Route: 042
     Dates: start: 20210811, end: 20210811
  10. CYCLOPHOSPHAMIDE [Suspect]
     Active Substance: CYCLOPHOSPHAMIDE
     Indication: Diffuse large B-cell lymphoma stage IV
     Dosage: SINGLE
     Route: 042
     Dates: start: 20210721, end: 20210721
  11. CYCLOPHOSPHAMIDE [Suspect]
     Active Substance: CYCLOPHOSPHAMIDE
     Dosage: SINGLE
     Route: 042
     Dates: start: 20210811, end: 20210811
  12. PREDNISONE [Suspect]
     Active Substance: PREDNISONE
     Indication: Diffuse large B-cell lymphoma stage IV
     Dosage: 100 MILLIGRAM DAILY;
     Route: 048
     Dates: start: 20210721, end: 20210725
  13. PREDNISONE [Suspect]
     Active Substance: PREDNISONE
     Dosage: 100 MILLIGRAM DAILY;
     Route: 048
     Dates: start: 20210811, end: 20210815
  14. PREDNISOLONE [Concomitant]
     Active Substance: PREDNISOLONE
     Dates: start: 20210811, end: 20210815
  15. PREDNISOLONE [Concomitant]
     Active Substance: PREDNISOLONE
     Dates: start: 20210721, end: 20210906
  16. ONDANSETRON [Concomitant]
     Active Substance: ONDANSETRON
     Dates: start: 20210721, end: 20210813
  17. ONDANSETRON [Concomitant]
     Active Substance: ONDANSETRON
     Dates: start: 20210813
  18. RASBURICASE [Concomitant]
     Active Substance: RASBURICASE
     Dates: start: 20210721, end: 20210722
  19. FILGRASTIM [Concomitant]
     Active Substance: FILGRASTIM
     Route: 065
     Dates: start: 20210812, end: 20210818
  20. FILGRASTIM [Concomitant]
     Active Substance: FILGRASTIM
     Dates: start: 20210818
  21. CHLORPHENIRAMINE MALEATE [Concomitant]
     Active Substance: CHLORPHENIRAMINE MALEATE
     Route: 042
     Dates: start: 20210722, end: 20210811
  22. CHLORPHENIRAMINE MALEATE [Concomitant]
     Active Substance: CHLORPHENIRAMINE MALEATE
     Route: 042
     Dates: start: 20210811
  23. ACETAMINOPHEN [Concomitant]
     Active Substance: ACETAMINOPHEN
     Route: 048
     Dates: start: 20210722, end: 20210811
  24. ACETAMINOPHEN [Concomitant]
     Active Substance: ACETAMINOPHEN
     Route: 048
     Dates: start: 20210811
  25. ACYCLOVIR [Concomitant]
     Active Substance: ACYCLOVIR
     Dosage: ONGOING
     Route: 065
     Dates: start: 20210721
  26. COTRIMOXAZOLE [Concomitant]
     Active Substance: SULFAMETHOXAZOLE\TRIMETHOPRIM
     Route: 065
     Dates: start: 20210721
  27. CODEINE [Concomitant]
     Active Substance: CODEINE
     Dosage: ONGOING
     Route: 065
     Dates: start: 20210721
  28. FLUCONAZOLE [Concomitant]
     Active Substance: FLUCONAZOLE
     Dosage: ONGOING
     Route: 065
     Dates: start: 20210721
  29. LANSOPRAZOLE [Concomitant]
     Active Substance: LANSOPRAZOLE
     Dosage: ONGOING
     Route: 065
     Dates: start: 202106
  30. METOCLOPRAMIDE [Concomitant]
     Active Substance: METOCLOPRAMIDE
     Dosage: ONGOING
     Route: 065
     Dates: start: 20210721
  31. CYCLIZINE [Concomitant]
     Active Substance: CYCLIZINE
     Dosage: ONGOING
     Dates: start: 20210824
  32. SENNA [Concomitant]
     Active Substance: SENNA LEAF\SENNOSIDES\SENNOSIDES A AND B
     Dosage: ONGOING
     Dates: start: 20210818
  33. DALTEPARIN [Concomitant]
     Active Substance: DALTEPARIN
     Dates: start: 20210721, end: 20210827

REACTIONS (1)
  - Febrile neutropenia [Recovered/Resolved]

NARRATIVE: CASE EVENT DATE: 20210819
